FAERS Safety Report 7882093-2 (Version None)
Quarter: 2011Q4

REPORT INFORMATION
  Report Type: 
  Country: None (occurrence: None)
  Receive Date: 20111101
  Receipt Date: 20110608
  Transmission Date: 20120403
  Serious: No
  Sender: FDA-Public Use
  Company Number: US-AMGEN-USASP2011029575

PATIENT
  Sex: Female

DRUGS (2)
  1. ENBREL [Suspect]
     Indication: RHEUMATOID ARTHRITIS
     Dosage: 50 MG, QWK
     Dates: start: 19991001
  2. BAND-AID                           /00038301/ [Concomitant]

REACTIONS (5)
  - ERYTHEMA [None]
  - DISCOMFORT [None]
  - PRURITUS [None]
  - DENTAL CARIES [None]
  - ONYCHOMYCOSIS [None]
